FAERS Safety Report 9506186 (Version 1)
Quarter: 2013Q1

REPORT INFORMATION
  Report Type: Spontaneous
  Country: US (occurrence: None)
  Receive Date: 20130305
  Receipt Date: 20130305
  Transmission Date: 20140127
  Serious: Yes (Other)
  Sender: FDA-Public Use
  Company Number: 163-21880-12091483

PATIENT
  Age: 69 Year
  Sex: Male

DRUGS (2)
  1. REVLIMID (LENALIDOMIDE) (25 MILLIGRAM, CAPSULES) [Suspect]
     Indication: PLASMA CELL MYELOMA
     Dosage: 21 IN 28 D
     Route: 048
     Dates: start: 20120822
  2. PLAVIX [Concomitant]

REACTIONS (6)
  - Anosmia [None]
  - Fatigue [None]
  - Decreased appetite [None]
  - Ageusia [None]
  - Dry mouth [None]
  - Muscle spasms [None]
